FAERS Safety Report 8347333-4 (Version None)
Quarter: 2012Q1

REPORT INFORMATION
  Report Type: 
  Country: None (occurrence: None)
  Receive Date: 20120315
  Receipt Date: 20110117
  Transmission Date: 20120608
  Serious: No
  Sender: FDA-Public Use
  Company Number: PHHY2010US88952

PATIENT
  Age: 42 Year
  Sex: Female

DRUGS (3)
  1. LYRICA [Concomitant]
  2. GILENYA [Suspect]
     Indication: MULTIPLE SCLEROSIS
     Dosage: 0.5 MG, QD, ORAL
     Route: 048
     Dates: start: 20101213, end: 20101214
  3. PAXIL [Concomitant]

REACTIONS (4)
  - PRURITUS [None]
  - RASH [None]
  - HYPERSENSITIVITY [None]
  - URTICARIA [None]
